FAERS Safety Report 22598585 (Version 2)
Quarter: 2023Q4

REPORT INFORMATION
  Report Type: Spontaneous
  Country: US (occurrence: US)
  Receive Date: 20230614
  Receipt Date: 20231121
  Transmission Date: 20240109
  Serious: No
  Sender: FDA-Public Use
  Company Number: US-BRISTOL-MYERS SQUIBB COMPANY-2023-083443

PATIENT
  Age: 70 Year
  Sex: Male
  Weight: 101.15 kg

DRUGS (1)
  1. REVLIMID [Suspect]
     Active Substance: LENALIDOMIDE
     Indication: Plasma cell myeloma
     Dosage: FREQUENCY-21D OF 28DAYS
     Route: 048
     Dates: start: 20221101

REACTIONS (2)
  - Herpes zoster [Unknown]
  - Diarrhoea [Recovering/Resolving]
